FAERS Safety Report 5150776-3 (Version None)
Quarter: 2006Q4

REPORT INFORMATION
  Report Type: 
  Country: None (occurrence: None)
  Receive Date: 20061108
  Receipt Date: 20061024
  Transmission Date: 20070319
  Serious: Yes (Other)
  Sender: FDA-Public Use
  Company Number: 2004EU001726

PATIENT
  Age: 51 Year
  Sex: Male

DRUGS (4)
  1. FK506 (TACROLIMUS) FORMULATION UNKNOWN [Suspect]
     Indication: RENAL TRANSPLANT
     Dosage: 0.1 MG/KG, BID
     Dates: start: 20021001, end: 20030101
  2. MYCOPHENOLATE MOFETIL [Suspect]
     Indication: RENAL TRANSPLANT
     Dosage: 2 G, D; 1G
     Dates: end: 20030101
  3. MYCOPHENOLATE MOFETIL [Suspect]
     Indication: RENAL TRANSPLANT
     Dosage: 2 G, D; 1G
     Dates: start: 20021001
  4. SIROLIMUS [Concomitant]

REACTIONS (2)
  - CYTOMEGALOVIRUS INFECTION [None]
  - KAPOSI'S SARCOMA [None]
